FAERS Safety Report 4778658-7 (Version None)
Quarter: 2005Q3

REPORT INFORMATION
  Report Type: 
  Country: None (occurrence: None)
  Receive Date: 20050926
  Receipt Date: 20050920
  Transmission Date: 20060218
  Serious: Yes (Hospitalization)
  Sender: FDA-Public Use
  Company Number: ES-GLAXOSMITHKLINE-B0394825A

PATIENT
  Age: 57 Year
  Sex: Female

DRUGS (3)
  1. LAMICTAL [Suspect]
     Indication: COMPLEX PARTIAL SEIZURES
     Dosage: 100MG PER DAY
     Dates: start: 20050601, end: 20050801
  2. ANTIHYPERTENSIVE [Concomitant]
  3. OSTEOPOROSIS MEDICATION [Concomitant]

REACTIONS (8)
  - CONVULSION [None]
  - EOSINOPHILIC PNEUMONIA ACUTE [None]
  - HYPOXIA [None]
  - PAINFUL RESPIRATION [None]
  - PYREXIA [None]
  - RASH [None]
  - RESPIRATORY DISTRESS [None]
  - ULCER [None]
